FAERS Safety Report 11577173 (Version 1)
Quarter: 2015Q3

REPORT INFORMATION
  Report Type: Spontaneous
  Country: US (occurrence: US)
  Receive Date: 20150930
  Receipt Date: 20150930
  Transmission Date: 20151125
  Serious: No
  Sender: FDA-Public Use
  Company Number: US-ASTRAZENECA-2015SE92647

PATIENT
  Age: 14427 Day
  Sex: Male
  Weight: 62.6 kg

DRUGS (3)
  1. CRESTOR [Suspect]
     Active Substance: ROSUVASTATIN CALCIUM
     Indication: BLOOD CHOLESTEROL INCREASED
     Route: 048
     Dates: start: 20150827
  2. IBUPROFEN. [Concomitant]
     Active Substance: IBUPROFEN
     Indication: SPINAL PAIN
     Route: 048
     Dates: start: 201502, end: 201509
  3. IBUPROFEN. [Concomitant]
     Active Substance: IBUPROFEN
     Indication: MUSCULOSKELETAL PAIN
     Route: 048
     Dates: start: 201502, end: 201509

REACTIONS (3)
  - Neck pain [Unknown]
  - Dyspepsia [Unknown]
  - Chest pain [Unknown]

NARRATIVE: CASE EVENT DATE: 20150922
